FAERS Safety Report 6992782-X (Version None)
Quarter: 2010Q3

REPORT INFORMATION
  Report Type: 
  Country: None (occurrence: None)
  Receive Date: 20100917
  Receipt Date: 20100913
  Transmission Date: 20110219
  Serious: Yes (Hospitalization)
  Sender: FDA-Public Use
  Company Number: A0873454A

PATIENT
  Age: 55 Year
  Sex: Male

DRUGS (23)
  1. ADVAIR DISKUS 100/50 [Suspect]
     Indication: CHRONIC OBSTRUCTIVE PULMONARY DISEASE
     Dosage: 1PUFF TWICE PER DAY
     Route: 055
     Dates: start: 20030101
  2. NITROGLYCERIN [Concomitant]
  3. CYMBALTA [Concomitant]
  4. XANAX [Concomitant]
  5. WELLBUTRIN [Concomitant]
  6. UNKNOWN MEDICATION [Concomitant]
  7. NEURONTIN [Concomitant]
  8. UNKNOWN MEDICATION [Concomitant]
  9. RESTASIS [Concomitant]
  10. ALBUTEROL NEBULES [Concomitant]
  11. ARICEPT [Concomitant]
  12. DARVOCET [Concomitant]
  13. ATARAX [Concomitant]
  14. VENTOLIN [Concomitant]
  15. ALLOPURINOL [Concomitant]
  16. NOVOLIN 70/30 [Concomitant]
  17. CARDIZEM CD [Concomitant]
  18. LANOXIN [Concomitant]
  19. WARFARIN SODIUM [Concomitant]
  20. FLOMAX [Concomitant]
  21. NEXIUM [Concomitant]
  22. LASIX [Concomitant]
  23. ZOCOR [Concomitant]

REACTIONS (9)
  - CARDIAC FAILURE [None]
  - CEREBROVASCULAR ACCIDENT [None]
  - CHEST DISCOMFORT [None]
  - CHRONIC OBSTRUCTIVE PULMONARY DISEASE [None]
  - DEMENTIA ALZHEIMER'S TYPE [None]
  - DYSPNOEA [None]
  - LOSS OF CONSCIOUSNESS [None]
  - SECRETION DISCHARGE [None]
  - VERTIGO [None]
